FAERS Safety Report 25073059 (Version 3)
Quarter: 2025Q4

REPORT INFORMATION
  Report Type: Spontaneous
  Country: US (occurrence: US)
  Receive Date: 20250313
  Receipt Date: 20251223
  Transmission Date: 20260117
  Serious: No
  Sender: TEVA
  Company Number: US-TEVA-VS-3303918

PATIENT
  Age: 72 Year
  Sex: Female

DRUGS (1)
  1. AUSTEDO [Suspect]
     Active Substance: DEUTETRABENAZINE
     Indication: Tardive dyskinesia
     Dosage: 2 TABLETS BY MOUTH TWICE DAILY (2 TABLETS AT MORNING AND 2 TABLET AT NIGHT AFTER FOOD)
     Route: 048

REACTIONS (6)
  - Restlessness [Unknown]
  - Drug ineffective [Unknown]
  - Drooling [Unknown]
  - Product use in unapproved indication [Unknown]
  - Tremor [Unknown]
  - Symptom recurrence [Unknown]

NARRATIVE: CASE EVENT DATE: 20250101
